FAERS Safety Report 7291268-5 (Version None)
Quarter: 2011Q1

REPORT INFORMATION
  Report Type: 
  Country: None (occurrence: None)
  Receive Date: 20110214
  Receipt Date: 20110203
  Transmission Date: 20110831
  Serious: Yes (Other)
  Sender: FDA-Public Use
  Company Number: US-ASTRAZENECA-2011SE06886

PATIENT
  Age: 632 Month
  Sex: Male

DRUGS (2)
  1. PLAVIX [Concomitant]
  2. NEXIUM [Suspect]
     Route: 048

REACTIONS (4)
  - CEREBROVASCULAR ACCIDENT [None]
  - HYPOAESTHESIA [None]
  - DRUG DOSE OMISSION [None]
  - HYPOAESTHESIA FACIAL [None]
